FAERS Safety Report 7147876-5 (Version None)
Quarter: 2010Q4

REPORT INFORMATION
  Report Type: 
  Country: None (occurrence: None)
  Receive Date: 20101207
  Receipt Date: 20101207
  Transmission Date: 20110411
  Serious: Yes (Hospitalization)
  Sender: FDA-Public Use
  Company Number: None

PATIENT
  Sex: Female
  Weight: 63.05 kg

DRUGS (4)
  1. VANCOMYCIN [Suspect]
     Indication: ENDOCARDITIS
     Dosage: 750MG Q8H IV
     Route: 042
     Dates: start: 20100325, end: 20100415
  2. GENTAMICIN [Concomitant]
  3. CIPROFLOXACIN [Concomitant]
  4. KEPPRA [Concomitant]

REACTIONS (2)
  - DRUG HYPERSENSITIVITY [None]
  - DRUG RASH WITH EOSINOPHILIA AND SYSTEMIC SYMPTOMS [None]
